FAERS Safety Report 4908590-7 (Version None)
Quarter: 2006Q1

REPORT INFORMATION
  Report Type: 
  Country: None (occurrence: None)
  Receive Date: 20060210
  Receipt Date: 20050908
  Transmission Date: 20060701
  Serious: No
  Sender: FDA-Public Use
  Company Number: US-GLAXOSMITHKLINE-A0573478A

PATIENT
  Age: 63 Year
  Sex: Female

DRUGS (5)
  1. PAXIL CR [Suspect]
     Dosage: 37.5MG PER DAY
     Route: 048
     Dates: start: 20050701
  2. ALTACE [Concomitant]
  3. TOPROL [Concomitant]
  4. PREVACID [Concomitant]
  5. LOPID [Concomitant]

REACTIONS (2)
  - FEELING JITTERY [None]
  - SOMNOLENCE [None]
